FAERS Safety Report 10314947 (Version 1)
Quarter: 2014Q3

REPORT INFORMATION
  Report Type: Spontaneous
  Country: US (occurrence: US)
  Receive Date: 20140718
  Receipt Date: 20140718
  Transmission Date: 20150326
  Serious: Yes (Other)
  Sender: FDA-Public Use
  Company Number: US-009507513-1407USA006646

PATIENT
  Sex: Male
  Weight: 77.3 kg

DRUGS (2)
  1. REBETOL [Suspect]
     Active Substance: RIBAVIRIN
     Indication: HEPATITIS C
     Dosage: THREE CAPSULES BY MOUTH TWICE A DAY
     Route: 048
     Dates: start: 20111104, end: 20120813
  2. BOCEPREVIR [Suspect]
     Active Substance: BOCEPREVIR
     Indication: HEPATITIS C
     Dosage: 4 CAPSULES BY MOUTH EVERY 8 HOURS
     Route: 048
     Dates: start: 20111209, end: 20120803

REACTIONS (1)
  - Anaemia [Recovered/Resolved]

NARRATIVE: CASE EVENT DATE: 20120413
